FAERS Safety Report 20894153 (Version 1)
Quarter: 2022Q2

REPORT INFORMATION
  Report Type: Spontaneous
  Country: US (occurrence: US)
  Receive Date: 20220531
  Receipt Date: 20220531
  Transmission Date: 20220721
  Serious: Yes (Other)
  Sender: FDA-Public Use
  Company Number: US-ELI_LILLY_AND_COMPANY-US202205008367

PATIENT
  Sex: Female

DRUGS (1)
  1. BEBTELOVIMAB [Suspect]
     Active Substance: BEBTELOVIMAB
     Indication: COVID-19
     Dosage: UNK, SINGLE
     Route: 065

REACTIONS (14)
  - Seizure [Unknown]
  - Shock [Unknown]
  - Loss of consciousness [Unknown]
  - Tenderness [Unknown]
  - Frustration tolerance decreased [Unknown]
  - Fear [Unknown]
  - Tremor [Unknown]
  - Affect lability [Unknown]
  - Cold sweat [Unknown]
  - Crying [Unknown]
  - Blood pressure systolic decreased [Unknown]
  - Throat clearing [Unknown]
  - Lethargy [Unknown]
  - Incorrect route of product administration [Unknown]
